FAERS Safety Report 5326350-2 (Version None)
Quarter: 2007Q2

REPORT INFORMATION
  Report Type: 
  Country: None (occurrence: None)
  Receive Date: 20070516
  Receipt Date: 20070515
  Transmission Date: 20071010
  Serious: Yes (Hospitalization)
  Sender: FDA-Public Use
  Company Number: A0651414A

PATIENT
  Age: 46 Year
  Sex: Male

DRUGS (10)
  1. ADVAIR DISKUS 100/50 [Suspect]
     Indication: ASTHMA
     Route: 055
     Dates: start: 20050301
  2. STEROIDS [Suspect]
     Route: 065
  3. GLUCOPHAGE [Concomitant]
  4. NOVOLOG [Concomitant]
  5. LANTUS [Concomitant]
  6. NORVASC [Concomitant]
  7. ENALAPRIL [Concomitant]
  8. HYDROCHLOROTHIAZIDE [Concomitant]
  9. CLONIDINE [Concomitant]
  10. ALPRAZOLAM [Concomitant]

REACTIONS (2)
  - BLOOD GLUCOSE INCREASED [None]
  - RESPIRATORY TRACT INFECTION [None]
